FAERS Safety Report 6314389-X (Version None)
Quarter: 2009Q3

REPORT INFORMATION
  Report Type: 
  Country: None (occurrence: None)
  Receive Date: 20090819
  Receipt Date: 20090811
  Transmission Date: 20100115
  Serious: Yes (Hospitalization, Other)
  Sender: FDA-Public Use
  Company Number: US-CELGENEUS-163-21880-09080757

PATIENT
  Sex: Male
  Weight: 62 kg

DRUGS (6)
  1. REVLIMID [Suspect]
     Route: 048
     Dates: start: 20090721, end: 20090803
  2. DEXAMETHASONE [Suspect]
     Route: 048
     Dates: start: 20090721, end: 20090801
  3. BORTEZOMIB [Suspect]
     Route: 051
     Dates: start: 20090721, end: 20090730
  4. OXYCONTIN [Suspect]
     Indication: DRUG USE FOR UNKNOWN INDICATION
     Route: 065
  5. VICODIN [Suspect]
     Indication: DRUG USE FOR UNKNOWN INDICATION
     Route: 065
  6. ASPIRIN [Concomitant]
     Indication: DRUG USE FOR UNKNOWN INDICATION
     Route: 048

REACTIONS (2)
  - CONFUSIONAL STATE [None]
  - HALLUCINATION [None]
